FAERS Safety Report 20694088 (Version 1)
Quarter: 2022Q2

REPORT INFORMATION
  Report Type: Spontaneous
  Country: ES (occurrence: ES)
  Receive Date: 20220411
  Receipt Date: 20220411
  Transmission Date: 20220721
  Serious: Yes (Life-Threatening, Hospitalization)
  Sender: FDA-Public Use
  Company Number: ES-AEMPS-1000585

PATIENT
  Age: 62 Year
  Sex: Female

DRUGS (4)
  1. MORPHINE [Suspect]
     Active Substance: MORPHINE
     Indication: Back pain
     Dosage: 13 MILLIGRAM, INFUSION 8 HOURS ; IN TOTAL
     Route: 041
     Dates: start: 20210716, end: 20210716
  2. ONDANSETRON [Concomitant]
     Active Substance: ONDANSETRON
     Indication: Back pain
     Dosage: UNK
     Route: 041
     Dates: start: 20210716, end: 20210716
  3. METAMIZOL SODIUM [Concomitant]
     Active Substance: METAMIZOL SODIUM
     Indication: Back pain
     Dosage: UNK
     Route: 041
     Dates: start: 20210716, end: 20210716
  4. ACETAMINOPHEN [Concomitant]
     Active Substance: ACETAMINOPHEN
     Indication: Product used for unknown indication
     Dosage: UNK
     Route: 065
     Dates: start: 20210716

REACTIONS (6)
  - Tachypnoea [Unknown]
  - Tachycardia [Unknown]
  - Contraindicated product administered [Unknown]
  - Coma [Unknown]
  - Respiratory failure [Unknown]
  - Hypertension [Unknown]

NARRATIVE: CASE EVENT DATE: 20210716
